FAERS Safety Report 9231892 (Version 2)
Quarter: 2013Q2

REPORT INFORMATION
  Report Type: Spontaneous
  Country: FR (occurrence: FR)
  Receive Date: 20130415
  Receipt Date: 20130417
  Transmission Date: 20140414
  Serious: No
  Sender: FDA-Public Use
  Company Number: FR-ASTRAZENECA-2013SE23434

PATIENT
  Age: 505 Month
  Sex: Male

DRUGS (2)
  1. XEROQUEL [Suspect]
     Indication: BIPOLAR DISORDER
     Route: 048
  2. TERCIAN [Concomitant]

REACTIONS (1)
  - Alanine aminotransferase increased [Not Recovered/Not Resolved]
